FAERS Safety Report 15290158 (Version 2)
Quarter: 2018Q4

REPORT INFORMATION
  Report Type: Spontaneous
  Country: US (occurrence: US)
  Receive Date: 20180817
  Receipt Date: 20181011
  Transmission Date: 20190204
  Serious: Yes (Hospitalization)
  Sender: FDA-Public Use
  Company Number: US-JNJFOC-20180816880

PATIENT
  Age: 68 Year
  Sex: Male

DRUGS (8)
  1. TYLENOL [Concomitant]
     Active Substance: ACETAMINOPHEN
  2. IMBRUVICA [Suspect]
     Active Substance: IBRUTINIB
     Indication: NON-HODGKIN^S LYMPHOMA
     Dosage: 140 MG, QD
     Route: 048
     Dates: start: 20180501, end: 20180613
  3. TAMSULOSIN [Concomitant]
     Active Substance: TAMSULOSIN
     Route: 065
  4. IMBRUVICA [Suspect]
     Active Substance: IBRUTINIB
     Indication: NON-HODGKIN^S LYMPHOMA
     Dosage: 140 MG, QD
     Route: 048
     Dates: start: 2018, end: 20180614
  5. MULTIVITAMINS [Concomitant]
     Active Substance: VITAMINS
  6. FLUCONAZOLE. [Suspect]
     Active Substance: FLUCONAZOLE
     Indication: PRODUCT USED FOR UNKNOWN INDICATION
     Route: 065
  7. ASCORBIC ACID. [Concomitant]
     Active Substance: ASCORBIC ACID
  8. IMBRUVICA [Suspect]
     Active Substance: IBRUTINIB
     Indication: NON-HODGKIN^S LYMPHOMA
     Dosage: 140 MG, QD
     Route: 048
     Dates: start: 2018, end: 20180503

REACTIONS (3)
  - Product dose omission [Unknown]
  - Feeling abnormal [Recovered/Resolved]
  - Labelled drug-drug interaction medication error [Unknown]

NARRATIVE: CASE EVENT DATE: 2018
